FAERS Safety Report 9337508 (Version 1)
Quarter: 2013Q2

REPORT INFORMATION
  Report Type: Spontaneous
  Country: DE (occurrence: DE)
  Receive Date: 20130607
  Receipt Date: 20130607
  Transmission Date: 20140414
  Serious: Yes (Other)
  Sender: FDA-Public Use
  Company Number: DE-ELI_LILLY_AND_COMPANY-DE201306001099

PATIENT
  Sex: Female

DRUGS (4)
  1. EFIENT [Suspect]
     Indication: MYOCARDIAL INFARCTION
     Dosage: 10 MG, UNKNOWN
     Route: 048
     Dates: start: 20130327
  2. ASS [Concomitant]
  3. RAMIPRIL [Concomitant]
  4. METOHEXAL [Concomitant]

REACTIONS (1)
  - Small cell carcinoma [Not Recovered/Not Resolved]
